FAERS Safety Report 7563599-2 (Version None)
Quarter: 2011Q2

REPORT INFORMATION
  Report Type: 
  Country: None (occurrence: None)
  Receive Date: 20110621
  Receipt Date: 20110621
  Transmission Date: 20111010
  Serious: Yes (Disabling)
  Sender: FDA-Public Use
  Company Number: None

PATIENT
  Age: 30 Year
  Sex: Male
  Weight: 79.3795 kg

DRUGS (1)
  1. RISPERDAL [Suspect]
     Indication: PSYCHOTIC DISORDER
     Dosage: 2MG 2 TIMES ORAL
     Route: 048

REACTIONS (3)
  - SOMNOLENCE [None]
  - NERVOUS SYSTEM DISORDER [None]
  - DIZZINESS [None]
